FAERS Safety Report 9701648 (Version 4)
Quarter: 2014Q1

REPORT INFORMATION
  Report Type: Report from Study
  Country: US (occurrence: US)
  Receive Date: 20131121
  Receipt Date: 20140313
  Transmission Date: 20141002
  Serious: Yes (Hospitalization)
  Sender: FDA-Public Use
  Company Number: US-B.I. PHARMACEUTICALS,INC./RIDGEFIELD-2013-BI-13587BI

PATIENT
  Age: 50 Year
  Sex: Female

DRUGS (4)
  1. BIBW 2992 [Suspect]
     Indication: NON-SMALL CELL LUNG CANCER
     Dosage: 40 MG
     Route: 048
     Dates: start: 20130313, end: 20130605
  2. MS CONTIN [Suspect]
     Indication: PAIN
     Dosage: 60 MG
     Route: 048
     Dates: start: 20130312
  3. GABAPENTIN [Suspect]
     Indication: PAIN
     Dosage: 300 MG
     Route: 048
     Dates: start: 20130312
  4. GABAPENTIN [Suspect]
     Dosage: 300 MG
     Route: 048
     Dates: start: 20130324

REACTIONS (6)
  - Constipation [Recovered/Resolved]
  - Abdominal pain [Recovered/Resolved]
  - Arthralgia [Recovered/Resolved]
  - Oedema peripheral [Not Recovered/Not Resolved]
  - Oedema [Not Recovered/Not Resolved]
  - Arthralgia [Not Recovered/Not Resolved]
